FAERS Safety Report 7013762-4 (Version None)
Quarter: 2010Q3

REPORT INFORMATION
  Report Type: 
  Country: None (occurrence: None)
  Receive Date: 20100924
  Receipt Date: 20100915
  Transmission Date: 20110219
  Serious: Yes (Other)
  Sender: FDA-Public Use
  Company Number: PHHY2010AU23976

PATIENT
  Sex: Female

DRUGS (13)
  1. ACLASTA [Suspect]
     Dosage: 5 MG
     Route: 042
  2. ACIMAX [Concomitant]
     Dosage: 20 MG
     Route: 048
  3. BACTRIM DS [Concomitant]
     Dosage: 160/800 MG
     Route: 048
  4. CELEBREX [Concomitant]
     Dosage: 100 MG, ONCE DAILY
     Route: 048
  5. CELESTONE [Concomitant]
     Dosage: 0.02%
     Route: 061
  6. FELODUR [Concomitant]
     Dosage: 5 MG, DAILY
     Route: 048
  7. LIPEX [Concomitant]
     Dosage: 40 MG, DIALY
     Route: 048
  8. LOVAN [Concomitant]
     Dosage: 20 MG, DAILY
     Route: 048
  9. PANADOL [Concomitant]
     Dosage: 665 MG
  10. BOOSTRIX [Concomitant]
     Dosage: UNK
     Dates: start: 20090407
  11. FLUVAX [Concomitant]
     Dosage: UNK
     Dates: start: 20090407
  12. PNEUMOVAX 23 [Concomitant]
     Dosage: UNK
     Dates: start: 20090407
  13. VAXIGRIP [Concomitant]
     Dosage: UNK
     Dates: start: 20100531

REACTIONS (7)
  - CHILLS [None]
  - DECREASED APPETITE [None]
  - HALLUCINATION [None]
  - INFLUENZA LIKE ILLNESS [None]
  - INFUSION SITE REACTION [None]
  - INTENTION TREMOR [None]
  - NAUSEA [None]
